FAERS Safety Report 7068394-9 (Version None)
Quarter: 2010Q4

REPORT INFORMATION
  Report Type: 
  Country: None (occurrence: None)
  Receive Date: 20101028
  Receipt Date: 20101025
  Transmission Date: 20110411
  Serious: Yes (Hospitalization)
  Sender: FDA-Public Use
  Company Number: B0621872B

PATIENT
  Sex: Female
  Weight: 63 kg

DRUGS (11)
  1. TOPOTECAN [Suspect]
     Dosage: 2.6MG CYCLIC
     Dates: start: 20091123
  2. METADON [Concomitant]
     Dosage: 90MG THREE TIMES PER DAY
     Route: 048
     Dates: start: 20091031
  3. METOPROLOL SUCCINATE [Concomitant]
     Indication: ATRIAL FIBRILLATION
     Dosage: 100MG TWICE PER DAY
     Route: 048
  4. NEXIUM [Concomitant]
     Dosage: 80MG TWICE PER DAY
     Route: 048
  5. OXYCODONE HCL [Concomitant]
     Route: 048
     Dates: start: 20091207
  6. GABAPENTIN [Concomitant]
     Dosage: 2700MG THREE TIMES PER DAY
     Route: 048
     Dates: start: 20091207
  7. ZOPICLONE [Concomitant]
     Indication: HYPNOTHERAPY
     Dosage: 7.5MG AS REQUIRED
     Route: 048
     Dates: start: 20091201
  8. ACETAMINOPHEN AND CODEINE PHOSPHATE [Concomitant]
     Dosage: 1G AS REQUIRED
     Route: 048
     Dates: start: 20091201
  9. TOILAX [Concomitant]
     Indication: CONSTIPATION
     Dosage: 5MG PER DAY
     Route: 048
     Dates: start: 20100105
  10. PREDNISOLONE [Concomitant]
     Indication: NAUSEA
     Dosage: 50MG PER DAY
     Route: 048
     Dates: start: 20100120, end: 20100120
  11. NEULASTA [Concomitant]
     Indication: INFECTION PROPHYLAXIS
     Route: 058
     Dates: start: 20100125, end: 20100125

REACTIONS (4)
  - ANAEMIA [None]
  - FATIGUE [None]
  - GENERAL PHYSICAL HEALTH DETERIORATION [None]
  - PAINFUL RESPIRATION [None]
